FAERS Safety Report 7827540-7 (Version None)
Quarter: 2011Q4

REPORT INFORMATION
  Report Type: 
  Country: None (occurrence: None)
  Receive Date: 20111020
  Receipt Date: 20111012
  Transmission Date: 20120403
  Serious: Yes (Other)
  Sender: FDA-Public Use
  Company Number: PHHY2011JP90813

PATIENT
  Age: 60 Year
  Sex: Male

DRUGS (5)
  1. EXELON [Suspect]
     Dosage: 13.5MG 1 PATCH DAILY
     Route: 062
  2. EXELON [Suspect]
     Dosage: 9MG 1 PATCH DAILY
     Route: 062
  3. EXELON [Suspect]
     Indication: DEMENTIA ALZHEIMER'S TYPE
     Dosage: 4.5MG 1 PATCH DAILY
     Route: 062
     Dates: start: 20110701
  4. EXELON [Suspect]
     Dosage: 18MG 1 PATCH DAILY
     Route: 062
     Dates: start: 20110914, end: 20110901
  5. SEROQUEL [Suspect]
     Dosage: 25 MG, DAILY
     Route: 048
     Dates: start: 20091001

REACTIONS (5)
  - PYREXIA [None]
  - HYPERHIDROSIS [None]
  - DEPRESSED LEVEL OF CONSCIOUSNESS [None]
  - NEUROLEPTIC MALIGNANT SYNDROME [None]
  - BLOOD CREATINE PHOSPHOKINASE INCREASED [None]
